FAERS Safety Report 10077624 (Version 2)
Quarter: 2014Q2

REPORT INFORMATION
  Report Type: Spontaneous
  Country: US (occurrence: US)
  Receive Date: 20140414
  Receipt Date: 20140414
  Transmission Date: 20141212
  Serious: No
  Sender: FDA-Public Use
  Company Number: US-BANPHARM-20142009

PATIENT
  Age: 22 Year
  Sex: Female
  Weight: 68.04 kg

DRUGS (4)
  1. ALEVE LIQUID GELS 220 MG [Suspect]
     Indication: DYSMENORRHOEA
     Dosage: 2 DF, PRN,
     Route: 048
  2. ONE A DAY [Concomitant]
  3. FLONASE [Concomitant]
  4. ZYRTEC [Concomitant]

REACTIONS (1)
  - Vomiting [Recovered/Resolved]
